FAERS Safety Report 12800500 (Version 1)
Quarter: 2016Q3

REPORT INFORMATION
  Report Type: Report from Study
  Country: DE (occurrence: DE)
  Receive Date: 20160930
  Receipt Date: 20160930
  Transmission Date: 20161109
  Serious: Yes (Hospitalization)
  Sender: FDA-Public Use
  Company Number: DE-ABBVIE-16P-062-1740770-00

PATIENT
  Age: 0 Day
  Weight: 1.49 kg

DRUGS (2)
  1. HUMIRA [Suspect]
     Active Substance: ADALIMUMAB
     Route: 063
  2. HUMIRA [Suspect]
     Active Substance: ADALIMUMAB
     Indication: MATERNAL EXPOSURE TIMING UNSPECIFIED
     Route: 064

REACTIONS (4)
  - Premature baby [Recovered/Resolved]
  - Exposure during breast feeding [Unknown]
  - Foetal exposure during pregnancy [Unknown]
  - Umbilical cord around neck [Recovered/Resolved]

NARRATIVE: CASE EVENT DATE: 20160811
